FAERS Safety Report 9722912 (Version 1)
Quarter: 2013Q4

REPORT INFORMATION
  Report Type: Report from Study
  Country: US (occurrence: US)
  Receive Date: 20131202
  Receipt Date: 20131202
  Transmission Date: 20140711
  Serious: Yes (Death)
  Sender: FDA-Public Use
  Company Number: US-SA-2013SA123815

PATIENT
  Age: 59 Year
  Sex: Male

DRUGS (2)
  1. RENVELA [Suspect]
     Indication: PRODUCT USED FOR UNKNOWN INDICATION
     Dosage: 2.4 G SACHET, 1 WITH MEALS AND 1 WITH SNACKS
     Route: 065
     Dates: start: 201303
  2. RENVELA [Suspect]
     Indication: PRODUCT USED FOR UNKNOWN INDICATION
     Dosage: 800 MG TABLETS, 4 WITH MEALS AND 2 WITH SNACKS
     Route: 065

REACTIONS (1)
  - Death [Fatal]
